FAERS Safety Report 20389064 (Version 5)
Quarter: 2024Q1

REPORT INFORMATION
  Report Type: Report from Study
  Country: CA (occurrence: CA)
  Receive Date: 20220128
  Receipt Date: 20240307
  Transmission Date: 20240410
  Serious: Yes (Hospitalization)
  Sender: FDA-Public Use
  Company Number: CA-ABBVIE-22K-028-4252197-00

PATIENT
  Age: 42 Year
  Sex: Female

DRUGS (2)
  1. HUMIRA [Suspect]
     Active Substance: ADALIMUMAB
     Indication: Crohn^s disease
     Route: 058
  2. HUMIRA [Suspect]
     Active Substance: ADALIMUMAB
     Dosage: FORM STRENGTH: 40 MG
     Route: 058
     Dates: start: 20120910

REACTIONS (9)
  - Haemorrhage [Unknown]
  - Haemorrhoidal haemorrhage [Unknown]
  - Unresponsive to stimuli [Unknown]
  - Depressed level of consciousness [Unknown]
  - Pallor [Unknown]
  - Rectal haemorrhage [Unknown]
  - Hyperhidrosis [Unknown]
  - Gastrointestinal haemorrhage [Unknown]
  - Communication disorder [Unknown]

NARRATIVE: CASE EVENT DATE: 20220101
